FAERS Safety Report 24417793 (Version 4)
Quarter: 2025Q1

REPORT INFORMATION
  Report Type: Report from Study
  Country: CA (occurrence: CA)
  Receive Date: 20241009
  Receipt Date: 20250116
  Transmission Date: 20250409
  Serious: Yes (Hospitalization)
  Sender: GLAXOSMITHKLINE
  Company Number: CA-GLAXOSMITHKLINE INC-CA2024094170

PATIENT

DRUGS (4)
  1. MEPOLIZUMAB [Suspect]
     Active Substance: MEPOLIZUMAB
     Indication: Asthma
     Dosage: 100 MG, Q4W
     Route: 058
     Dates: start: 20240619
  2. MEPOLIZUMAB [Suspect]
     Active Substance: MEPOLIZUMAB
     Indication: Asthma
     Dosage: 100 MG, Q4W
     Route: 058
  3. VENTOLIN [Concomitant]
     Active Substance: ALBUTEROL SULFATE
     Indication: Product used for unknown indication
  4. SYMBICORT [Concomitant]
     Active Substance: BUDESONIDE\FORMOTEROL FUMARATE DIHYDRATE
     Indication: Product used for unknown indication
     Dosage: 2 PUFF(S), BID, 200/6 MCG

REACTIONS (7)
  - Hospitalisation [Unknown]
  - Herpes zoster [Unknown]
  - Dyspnoea [Not Recovered/Not Resolved]
  - Wheezing [Not Recovered/Not Resolved]
  - Therapeutic response shortened [Unknown]
  - Inappropriate schedule of product administration [Unknown]
  - Product dose omission issue [Unknown]

NARRATIVE: CASE EVENT DATE: 20240725
